FAERS Safety Report 10445715 (Version 3)
Quarter: 2015Q1

REPORT INFORMATION
  Report Type: Spontaneous
  Country: US (occurrence: US)
  Receive Date: 20140910
  Receipt Date: 20150323
  Transmission Date: 20150720
  Serious: Yes (Hospitalization)
  Sender: FDA-Public Use
  Company Number: US-BAYER-2014-135440

PATIENT
  Age: 19 Year
  Sex: Female
  Weight: 64.4 kg

DRUGS (3)
  1. MIRENA [Suspect]
     Active Substance: LEVONORGESTREL
     Indication: CONTRACEPTION
     Dosage: 20 MCG/24HR, CONT
     Route: 015
     Dates: start: 20110915, end: 20121010
  2. ALEVE [Concomitant]
     Active Substance: NAPROXEN SODIUM
     Indication: UTERINE SPASM
  3. OXYCODONE [Concomitant]
     Active Substance: OXYCODONE
     Indication: UTERINE SPASM

REACTIONS (3)
  - Uterine perforation [None]
  - Injury [None]
  - Pain [None]

NARRATIVE: CASE EVENT DATE: 201209
